FAERS Safety Report 10200521 (Version 1)
Quarter: 2014Q2

REPORT INFORMATION
  Report Type: Spontaneous
  Country: US (occurrence: US)
  Receive Date: 20140528
  Receipt Date: 20140528
  Transmission Date: 20141212
  Serious: No
  Sender: FDA-Public Use
  Company Number: US-BIOGENIDEC-2014BI047501

PATIENT
  Sex: Female

DRUGS (2)
  1. AVONEX [Suspect]
     Indication: MULTIPLE SCLEROSIS
     Route: 030
  2. RITUXAN [Concomitant]
     Indication: MULTIPLE SCLEROSIS

REACTIONS (4)
  - Knee operation [Unknown]
  - Fall [Recovered/Resolved]
  - Drug ineffective [Unknown]
  - Headache [Unknown]
